FAERS Safety Report 18738216 (Version 3)
Quarter: 2022Q3

REPORT INFORMATION
  Report Type: Report from Study
  Country: US (occurrence: US)
  Receive Date: 20210113
  Receipt Date: 20220713
  Transmission Date: 20221026
  Serious: No
  Sender: FDA-Public Use
  Company Number: US-VANDA PHARMACEUTICALS, INC-2020TASUS004578

PATIENT
  Sex: Male

DRUGS (7)
  1. HETLIOZ [Suspect]
     Active Substance: TASIMELTEON
     Indication: Non-24-hour sleep-wake disorder
     Dosage: 20 MILLIGRAM, QD, ONE HOUR BEFORE BEDTIME AT  THE SAME TIME EVERY NIGHT
     Route: 048
  2. HETLIOZ [Suspect]
     Active Substance: TASIMELTEON
     Dosage: 20 MILLIGRAM, QD
     Route: 048
  3. ZETIA [Concomitant]
     Active Substance: EZETIMIBE
     Indication: Product used for unknown indication
     Dosage: UNK
  4. LOSARTAN POTASSIUM [Concomitant]
     Active Substance: LOSARTAN POTASSIUM
     Indication: Product used for unknown indication
     Dosage: UNK
  5. ASPIRIN [Concomitant]
     Active Substance: ASPIRIN
     Indication: Product used for unknown indication
     Dosage: UNK
  6. VITAMIN D3 [Concomitant]
     Active Substance: CHOLECALCIFEROL
     Indication: Product used for unknown indication
     Dosage: UNK
  7. HERBALS\SAW PALMETTO [Concomitant]
     Active Substance: HERBALS\SAW PALMETTO
     Indication: Product used for unknown indication
     Dosage: UNK

REACTIONS (5)
  - Insomnia [Recovering/Resolving]
  - Abnormal dreams [Unknown]
  - Tachycardia [Unknown]
  - Therapeutic product effect variable [Unknown]
  - Inappropriate schedule of product administration [Unknown]
